FAERS Safety Report 7909325 (Version 2)
Quarter: 2012Q4

REPORT INFORMATION
  Report Type: 
  Country: US (occurrence: US)
  Receive Date: 20110421
  Receipt Date: 20121015
  Transmission Date: 20130627
  Serious: No
  Sender: FDA-Public Use
  Company Number: US-ASTRAZENECA-2010SE44817

PATIENT
  Age: 74 Year
  Sex: Female
  Weight: 77.1 kg

DRUGS (7)
  1. TOPROL XL [Suspect]
     Route: 048
     Dates: start: 200609, end: 2010
  2. TOPROL XL [Interacting]
     Dosage: UNKNOWN MANUFACTURER
     Route: 048
     Dates: start: 200710, end: 200710
  3. TOPROL XL [Interacting]
     Route: 048
     Dates: start: 2008, end: 2008
  4. TOPROL XL [Interacting]
     Route: 048
     Dates: start: 2010
  5. TOPROL XL [Interacting]
     Route: 048
  6. CYTOMEL [Interacting]
     Indication: THYROID DISORDER
     Dosage: 25 MCG
  7. LIPITOR [Concomitant]
     Indication: BLOOD CHOLESTEROL INCREASED
     Route: 048
     Dates: start: 200609

REACTIONS (15)
  - Drug interaction [Unknown]
  - Flushing [Unknown]
  - Chills [Recovered/Resolved]
  - Feeling cold [Recovered/Resolved]
  - Tachycardia [Unknown]
  - Oedema peripheral [Unknown]
  - Hyperhidrosis [Unknown]
  - Joint swelling [Recovered/Resolved]
  - Dizziness [Recovered/Resolved]
  - Adverse reaction [Unknown]
  - Dysstasia [Recovered/Resolved]
  - Feeling abnormal [Unknown]
  - Feeling abnormal [Unknown]
  - Pollakiuria [Unknown]
  - Intentional drug misuse [Unknown]
